FAERS Safety Report 15675503 (Version 1)
Quarter: 2018Q4

REPORT INFORMATION
  Report Type: Spontaneous
  Country: GB (occurrence: GB)
  Receive Date: 20181130
  Receipt Date: 20181130
  Transmission Date: 20190205
  Serious: Yes (Hospitalization)
  Sender: FDA-Public Use
  Company Number: GB-ASTRAZENECA-2018SF54928

PATIENT
  Age: 25 Year
  Sex: Female
  Weight: 53 kg

DRUGS (2)
  1. PREDNISOLONE. [Concomitant]
     Active Substance: PREDNISOLONE
     Dosage: 40.0MG UNKNOWN
  2. BENRALIZUMAB. [Suspect]
     Active Substance: BENRALIZUMAB
     Indication: ASTHMA
     Dosage: 30.0MG UNKNOWN
     Route: 058
     Dates: start: 20180823, end: 20180823

REACTIONS (4)
  - Aphasia [Recovered/Resolved]
  - Dysarthria [Recovered/Resolved]
  - Muscle twitching [Recovered/Resolved]
  - Headache [Recovered/Resolved]

NARRATIVE: CASE EVENT DATE: 20180823
